FAERS Safety Report 9485654 (Version 3)
Quarter: 2013Q4

REPORT INFORMATION
  Report Type: Spontaneous
  Country: JP (occurrence: JP)
  Receive Date: 20130829
  Receipt Date: 20131028
  Transmission Date: 20140711
  Serious: Yes (Other)
  Sender: FDA-Public Use
  Company Number: JP-BRISTOL-MYERS SQUIBB COMPANY-19207331

PATIENT
  Age: 80 Year
  Sex: Female

DRUGS (14)
  1. ORENCIA [Suspect]
     Indication: RHEUMATOID ARTHRITIS
     Dosage: DOSE?RESTARTED ON 8AUG13
     Route: 041
     Dates: start: 20130729
  2. KOLBET [Concomitant]
     Indication: RHEUMATOID ARTHRITIS
     Route: 048
     Dates: start: 20130418
  3. MEDROL [Concomitant]
     Indication: RHEUMATOID ARTHRITIS
     Dosage: TAB
     Route: 048
     Dates: start: 20130328, end: 20130731
  4. PREDONINE [Concomitant]
     Indication: RHEUMATOID ARTHRITIS
     Dosage: TAB
     Route: 048
     Dates: start: 20130801
  5. LYRICA [Concomitant]
     Indication: SCIATICA
     Dosage: CAP
     Route: 048
     Dates: start: 20130509
  6. MAGNESIUM OXIDE [Concomitant]
     Indication: CONSTIPATION
     Dosage: POWDER
     Route: 048
     Dates: start: 20130202
  7. SELBEX [Concomitant]
     Indication: GASTRITIS
     Dosage: CAP
     Route: 048
     Dates: start: 20130202
  8. MYONAL [Concomitant]
     Indication: MUSCLE TONE DISORDER
     Dosage: TAB
     Route: 048
     Dates: start: 20130202
  9. ZETIA [Concomitant]
     Indication: HYPERLIPIDAEMIA
     Route: 048
     Dates: start: 20001121
  10. NEXIUM [Concomitant]
     Indication: GASTRIC ULCER
     Dosage: TAB
     Route: 048
     Dates: start: 20130418
  11. ROHYPNOL [Concomitant]
     Indication: INSOMNIA
     Dosage: TAB
     Route: 048
     Dates: start: 20130509
  12. HALCION [Concomitant]
     Indication: INSOMNIA
     Dosage: TAB
     Route: 048
     Dates: start: 20130328
  13. DEPAS [Concomitant]
     Indication: INSOMNIA
     Route: 048
     Dates: start: 20130530
  14. SHAKUYAKU-KANZO-TO [Concomitant]
     Indication: MUSCLE SPASMS
     Dosage: GRANULES
     Route: 048
     Dates: start: 20130207

REACTIONS (1)
  - Cardiac failure congestive [Recovered/Resolved]
